FAERS Safety Report 8170989-6 (Version None)
Quarter: 2012Q1

REPORT INFORMATION
  Report Type: 
  Country: None (occurrence: None)
  Receive Date: 20120228
  Receipt Date: 20120217
  Transmission Date: 20120608
  Serious: Yes (Other)
  Sender: FDA-Public Use
  Company Number: US-BRISTOL-MYERS SQUIBB COMPANY-16405979

PATIENT
  Age: 69 Year
  Sex: Male
  Weight: 77 kg

DRUGS (15)
  1. COUMADIN [Suspect]
     Dates: start: 20110101
  2. ASPIRIN [Suspect]
  3. POTASSIUM CHLORIDE [Concomitant]
  4. IRON [Concomitant]
  5. LIPITOR [Concomitant]
  6. PRILOSEC [Concomitant]
  7. MULTI-VITAMINS [Concomitant]
  8. PLAVIX [Suspect]
     Dates: start: 20110101
  9. JANUVIA [Concomitant]
  10. TIKOSYN [Suspect]
     Indication: ATRIAL FIBRILLATION
     Dosage: CAPS
     Route: 048
     Dates: start: 20110101
  11. EXTRA STRENGTH TYLENOL [Concomitant]
  12. MAGNESIUM [Concomitant]
  13. ASCORBIC ACID [Concomitant]
  14. METOPROLOL TARTRATE [Concomitant]
  15. LISINOPRIL [Concomitant]

REACTIONS (2)
  - HAEMORRHAGE [None]
  - VASCULAR GRAFT [None]
